FAERS Safety Report 25655842 (Version 2)
Quarter: 2025Q3

REPORT INFORMATION
  Report Type: Report from Study
  Country: US (occurrence: US)
  Receive Date: 20250807
  Receipt Date: 20250901
  Transmission Date: 20251021
  Serious: No
  Sender: SUNOVION
  Company Number: US-SUMITOMO PHARMA SWITZERLAND GMBH-2025SPA007697

PATIENT
  Age: 69 Year
  Sex: Male

DRUGS (25)
  1. ORGOVYX [Suspect]
     Active Substance: RELUGOLIX
     Indication: Prostate cancer
     Route: 048
     Dates: start: 20250610, end: 20250610
  2. ORGOVYX [Suspect]
     Active Substance: RELUGOLIX
     Route: 048
  3. ASCORBIC ACID [Concomitant]
     Active Substance: ASCORBIC ACID
  4. ATORVASTATIN CALCIUM [Concomitant]
     Active Substance: ATORVASTATIN CALCIUM
  5. BONIVA [Concomitant]
     Active Substance: IBANDRONATE SODIUM
  6. CALCIUM CARBONATE\CHOLECALCIFEROL [Concomitant]
     Active Substance: CALCIUM CARBONATE\CHOLECALCIFEROL
  7. CETIRIZINE HCL [Concomitant]
     Active Substance: CETIRIZINE HYDROCHLORIDE
  8. ESOMEPRAZOLE MAGNESIUM [Concomitant]
     Active Substance: ESOMEPRAZOLE MAGNESIUM
  9. EXCEDRIN MIGRAINE [Concomitant]
     Active Substance: ACETAMINOPHEN\ASPIRIN\CAFFEINE
  10. FAMOTIDINE [Concomitant]
     Active Substance: FAMOTIDINE
  11. IBANDRONATE SODIUM [Concomitant]
     Active Substance: IBANDRONATE SODIUM
  12. IBUPROFEN [Concomitant]
     Active Substance: IBUPROFEN
  13. IPRATROPIUM BROMIDE [Concomitant]
     Active Substance: IPRATROPIUM BROMIDE
  14. LEVOTHYROXINE SODIUM [Concomitant]
     Active Substance: LEVOTHYROXINE SODIUM
  15. LINZESS [Concomitant]
     Active Substance: LINACLOTIDE
  16. LORATADINE [Concomitant]
     Active Substance: LORATADINE
  17. MAGNESIUM [Concomitant]
     Active Substance: MAGNESIUM
  18. MELOXICAM [Concomitant]
     Active Substance: MELOXICAM
  19. MONTELUKAST SODIUM [Concomitant]
     Active Substance: MONTELUKAST SODIUM
  20. OMEPRAZOLE [Concomitant]
     Active Substance: OMEPRAZOLE
  21. TESSALON [Concomitant]
     Active Substance: BENZONATATE
  22. VITAMIN B12 [Concomitant]
     Active Substance: CYANOCOBALAMIN
  23. VITAMIN D3 [Concomitant]
     Active Substance: CHOLECALCIFEROL
  24. ZINC GLUCONATE [Concomitant]
     Active Substance: ZINC GLUCONATE
  25. TAMSULOSIN [Concomitant]
     Active Substance: TAMSULOSIN

REACTIONS (4)
  - Cold flash [Unknown]
  - Micturition urgency [Unknown]
  - Abdominal pain upper [Not Recovered/Not Resolved]
  - Hot flush [Unknown]
